FAERS Safety Report 6034363-0 (Version None)
Quarter: 2009Q1

REPORT INFORMATION
  Report Type: 
  Country: None (occurrence: None)
  Receive Date: 20090109
  Receipt Date: 20081117
  Transmission Date: 20090719
  Serious: No
  Sender: FDA-Public Use
  Company Number: DL2008521

PATIENT
  Age: 31 Year
  Sex: Female

DRUGS (2)
  1. MIFEPRISTONE TABLETS, 200 MG (DANCO LABS) [Suspect]
     Indication: ABORTION INDUCED
     Dosage: 600 MG, ORAL
     Route: 049
     Dates: start: 20080911
  2. MISOPROSTOL [Suspect]
     Dosage: 800 MCG, ORAL
     Route: 048

REACTIONS (1)
  - HAEMORRHAGE [None]
